FAERS Safety Report 7579946-1 (Version None)
Quarter: 2011Q2

REPORT INFORMATION
  Report Type: 
  Country: None (occurrence: None)
  Receive Date: 20110622
  Receipt Date: 20110609
  Transmission Date: 20111010
  Serious: Yes (Hospitalization)
  Sender: FDA-Public Use
  Company Number: GB-DEXPHARM-20110743

PATIENT
  Age: 61 Year
  Sex: Male

DRUGS (2)
  1. DIPYRIDAMOLE [Concomitant]
  2. OMEPRAZOLE [Suspect]
     Indication: PRODUCT USED FOR UNKNOWN INDICATION

REACTIONS (21)
  - DECREASED APPETITE [None]
  - BODY TEMPERATURE INCREASED [None]
  - DRY SKIN [None]
  - PARIETAL CELL ANTIBODY POSITIVE [None]
  - CEREBROVASCULAR ACCIDENT [None]
  - LIVEDO RETICULARIS [None]
  - BLOOD ALKALINE PHOSPHATASE INCREASED [None]
  - HEPATITIS E [None]
  - THERAPY CESSATION [None]
  - WEIGHT DECREASED [None]
  - JAUNDICE [None]
  - TRANSIENT ISCHAEMIC ATTACK [None]
  - LIVER INJURY [None]
  - RESTLESSNESS [None]
  - HEADACHE [None]
  - DRUG INEFFECTIVE [None]
  - ALANINE AMINOTRANSFERASE INCREASED [None]
  - FAECES DISCOLOURED [None]
  - VOMITING [None]
  - SLEEP DISORDER [None]
  - PALLOR [None]
